FAERS Safety Report 8108199-0 (Version None)
Quarter: 2012Q1

REPORT INFORMATION
  Report Type: 
  Country: None (occurrence: None)
  Receive Date: 20120202
  Receipt Date: 20120123
  Transmission Date: 20120608
  Serious: Yes (Hospitalization)
  Sender: FDA-Public Use
  Company Number: DK-JNJFOC-20090900335

PATIENT
  Sex: Male
  Weight: 78.02 kg

DRUGS (9)
  1. FINASTERID [Concomitant]
     Indication: DYSURIA
     Route: 048
     Dates: start: 20090801
  2. CITALOPRAM HYDROBROMIDE [Concomitant]
     Indication: DEPRESSION
     Route: 048
     Dates: start: 20060101
  3. IBUPROFEN [Suspect]
     Indication: PAIN
     Route: 048
     Dates: start: 20090810, end: 20090824
  4. OXYCONTIN [Concomitant]
     Indication: BONE PAIN
     Route: 048
     Dates: start: 20090630
  5. LISINOPRIL [Concomitant]
     Indication: HYPERTENSION
     Route: 048
     Dates: start: 19930101
  6. OXYCODONE HCL [Concomitant]
     Indication: BONE PAIN
     Route: 048
     Dates: start: 20090630
  7. ASPIRIN [Concomitant]
     Indication: THROMBOSIS PROPHYLAXIS
     Route: 048
     Dates: start: 19930101
  8. SUNITINIB MALATE [Suspect]
     Indication: PROSTATE CANCER
     Route: 048
     Dates: start: 20090810
  9. PREDNISOLONE [Concomitant]
     Indication: PROSTATE CANCER
     Route: 048
     Dates: start: 20090810

REACTIONS (4)
  - RENAL FUNCTION TEST ABNORMAL [None]
  - DIZZINESS [None]
  - DEHYDRATION [None]
  - HYPOTENSION [None]
